FAERS Safety Report 17095019 (Version 1)
Quarter: 2019Q4

REPORT INFORMATION
  Report Type: Other
  Country: GR (occurrence: GR)
  Receive Date: 20191130
  Receipt Date: 20191130
  Transmission Date: 20200122
  Serious: Yes (Life-Threatening, Hospitalization)
  Sender: FDA-Public Use
  Company Number: GR-AJANTA PHARMA USA INC.-2077314

PATIENT
  Age: 56 Year
  Sex: Female

DRUGS (2)
  1. NEBIVOLOL. [Concomitant]
     Active Substance: NEBIVOLOL
  2. DULOXETINE (ANDA 208706) [Suspect]
     Active Substance: DULOXETINE

REACTIONS (1)
  - Spasmodic dysphonia [Recovered/Resolved]
